FAERS Safety Report 24450268 (Version 5)
Quarter: 2025Q1

REPORT INFORMATION
  Report Type: Spontaneous
  Country: GR (occurrence: GR)
  Receive Date: 20241017
  Receipt Date: 20250122
  Transmission Date: 20250409
  Serious: No
  Sender: PFIZER
  Company Number: GR-PFIZER INC-PV202400133679

PATIENT
  Age: 14 Year
  Sex: Male
  Weight: 30 kg

DRUGS (2)
  1. GENOTROPIN [Suspect]
     Active Substance: SOMATROPIN
     Indication: Hypopituitarism
     Dosage: 1 MG, DAILY (6 DAYS, ONE DAY OFF ON SATURDAY)
     Route: 058
     Dates: start: 202311
  2. GENOTROPIN [Suspect]
     Active Substance: SOMATROPIN
     Indication: Dwarfism

REACTIONS (4)
  - Poor quality device used [Unknown]
  - Device leakage [Unknown]
  - Device defective [Unknown]
  - Device mechanical issue [Unknown]

NARRATIVE: CASE EVENT DATE: 20241001
